FAERS Safety Report 18096636 (Version 1)
Quarter: 2020Q3

REPORT INFORMATION
  Report Type: Spontaneous
  Country: US (occurrence: US)
  Receive Date: 20200731
  Receipt Date: 20200731
  Transmission Date: 20201103
  Serious: No
  Sender: FDA-Public Use
  Company Number: US-ASTRAZENECA-2020SE86139

PATIENT
  Age: 22355 Day
  Sex: Male

DRUGS (1)
  1. BYDUREON BCISE [Suspect]
     Active Substance: EXENATIDE
     Route: 065
     Dates: start: 2019

REACTIONS (3)
  - Device leakage [Unknown]
  - Device issue [Unknown]
  - Injection site injury [Unknown]

NARRATIVE: CASE EVENT DATE: 20200702
